FAERS Safety Report 13395384 (Version 1)
Quarter: 2017Q2

REPORT INFORMATION
  Report Type: Spontaneous
  Country: US (occurrence: US)
  Receive Date: 20170403
  Receipt Date: 20170403
  Transmission Date: 20170830
  Serious: No
  Sender: FDA-Public Use
  Company Number: US-PFIZER INC-2017139888

PATIENT
  Age: 36 Year
  Sex: Female
  Weight: 83.91 kg

DRUGS (9)
  1. LYRICA [Suspect]
     Active Substance: PREGABALIN
     Indication: SPINAL CORD INJURY
     Dosage: 100 MG, 2X/DAY
     Route: 048
     Dates: start: 201602
  2. LYRICA [Suspect]
     Active Substance: PREGABALIN
     Indication: HERPES ZOSTER
     Dosage: 150 MG, 2X/DAY(150MG ONE CAPSULE BY MOUTH TWICE A DAY)
     Route: 048
     Dates: start: 201602
  3. TRAMADOL. [Concomitant]
     Active Substance: TRAMADOL
     Indication: HEADACHE
  4. BUTALBITAL, ACETAMINOPHEN, AND CAFFEINE [Concomitant]
     Active Substance: ACETAMINOPHEN\BUTALBITAL\CAFFEINE
     Indication: HEADACHE
     Dosage: 1 DF, AS NEEDED[BUTALBITAL, 50MG]/[ACETAMINOPHEN, 325MG]/[CAFFEINE, 40MG]
     Route: 048
     Dates: start: 201503
  5. NORTRIPTYLINE [Concomitant]
     Active Substance: NORTRIPTYLINE
     Indication: NEUROPATHY PERIPHERAL
     Dosage: 50 MG, DAILY (25MG, TWO GEL CAPSULES AT BEDTIMES)
     Route: 048
  6. LYRICA [Suspect]
     Active Substance: PREGABALIN
     Indication: NEURALGIA
     Dosage: 150 MG, DAILY (TOOK ONLY ONE CAPSULE BY MOUTH FOR ABOUT TWO DAYS)
     Route: 048
  7. LYRICA [Suspect]
     Active Substance: PREGABALIN
     Dosage: 200 MG, 2X/DAY
     Route: 048
  8. TRAMADOL. [Concomitant]
     Active Substance: TRAMADOL
     Indication: NEURALGIA
     Dosage: 50 MG, AS NEEDED(50MG ONE TABLET BY MOUTH TWICE DAILY AS NEEDED)
     Route: 048
     Dates: start: 201602
  9. NORTRIPTYLINE [Concomitant]
     Active Substance: NORTRIPTYLINE
     Indication: INSOMNIA
     Dosage: 50 MG, UNK (50MG TWO GEL CAPSULES BY MOUTH AT BEDTIME)
     Route: 048
     Dates: start: 201602

REACTIONS (9)
  - Diarrhoea [Recovered/Resolved]
  - Vitamin D decreased [Unknown]
  - Pain [Recovered/Resolved]
  - Intentional product use issue [Unknown]
  - Nausea [Recovered/Resolved]
  - Hyperhidrosis [Recovered/Resolved]
  - Disorientation [Recovered/Resolved]
  - Tremor [Recovered/Resolved]
  - Drug withdrawal syndrome [Recovered/Resolved]

NARRATIVE: CASE EVENT DATE: 201702
